FAERS Safety Report 12569463 (Version 1)
Quarter: 2016Q3

REPORT INFORMATION
  Report Type: Spontaneous
  Country: US (occurrence: US)
  Receive Date: 20160719
  Receipt Date: 20160719
  Transmission Date: 20161109
  Serious: Yes (Other)
  Sender: FDA-Public Use
  Company Number: US-ASTRAZENECA-2016SE75554

PATIENT
  Age: 25795 Day
  Sex: Female
  Weight: 122 kg

DRUGS (15)
  1. COZAAR [Concomitant]
     Active Substance: LOSARTAN POTASSIUM
     Indication: BLOOD PRESSURE ABNORMAL
     Route: 048
  2. QVAR [Concomitant]
     Active Substance: BECLOMETHASONE DIPROPIONATE
     Indication: MULTIPLE ALLERGIES
     Route: 055
  3. PRILOSEC [Suspect]
     Active Substance: OMEPRAZOLE MAGNESIUM
     Indication: GASTROOESOPHAGEAL REFLUX DISEASE
     Route: 048
     Dates: end: 2001
  4. NEXIUM [Suspect]
     Active Substance: ESOMEPRAZOLE MAGNESIUM
     Indication: GASTROOESOPHAGEAL REFLUX DISEASE
     Dosage: 60 MG
     Route: 048
  5. NEXIUM [Suspect]
     Active Substance: ESOMEPRAZOLE MAGNESIUM
     Indication: OESOPHAGEAL DISORDER
     Dosage: EXTRA 40 MG
     Route: 048
     Dates: start: 20160711
  6. NEXIUM [Suspect]
     Active Substance: ESOMEPRAZOLE MAGNESIUM
     Indication: GASTROOESOPHAGEAL REFLUX DISEASE
     Route: 048
     Dates: start: 2001
  7. NEXIUM [Suspect]
     Active Substance: ESOMEPRAZOLE MAGNESIUM
     Indication: OESOPHAGEAL DISORDER
     Dosage: 60 MG
     Route: 048
  8. NEXIUM 24HR [Suspect]
     Active Substance: ESOMEPRAZOLE MAGNESIUM
     Indication: GASTROOESOPHAGEAL REFLUX DISEASE
     Dosage: 20.0MG UNKNOWN
     Route: 048
     Dates: start: 2016
  9. NEXIUM 24HR [Suspect]
     Active Substance: ESOMEPRAZOLE MAGNESIUM
     Indication: OESOPHAGEAL DISORDER
     Dosage: 20.0MG UNKNOWN
     Route: 048
     Dates: start: 2016
  10. PRILOSEC [Suspect]
     Active Substance: OMEPRAZOLE MAGNESIUM
     Indication: OESOPHAGEAL DISORDER
     Route: 048
     Dates: end: 2001
  11. PROPULSID [Concomitant]
     Active Substance: CISAPRIDE
     Route: 048
     Dates: end: 1999
  12. NEXIUM [Suspect]
     Active Substance: ESOMEPRAZOLE MAGNESIUM
     Indication: OESOPHAGEAL DISORDER
     Route: 048
     Dates: start: 2001
  13. NEXIUM [Suspect]
     Active Substance: ESOMEPRAZOLE MAGNESIUM
     Indication: GASTROOESOPHAGEAL REFLUX DISEASE
     Dosage: EXTRA 40 MG
     Route: 048
     Dates: start: 20160711
  14. OXYBUTININ [Concomitant]
     Active Substance: OXYBUTYNIN
     Indication: INCONTINENCE
     Dosage: AS REQUIRED
     Route: 048
  15. LASIX [Concomitant]
     Active Substance: FUROSEMIDE
     Indication: DIURETIC THERAPY
     Route: 048

REACTIONS (8)
  - Extra dose administered [Unknown]
  - Incorrect drug administration duration [Unknown]
  - Insomnia [Unknown]
  - Vomiting [Unknown]
  - Weight increased [Unknown]
  - Deep vein thrombosis [Unknown]
  - Pulmonary thrombosis [Unknown]
  - Peripheral artery thrombosis [Unknown]
